FAERS Safety Report 16353770 (Version 1)
Quarter: 2019Q2

REPORT INFORMATION
  Report Type: Spontaneous
  Country: BR (occurrence: BR)
  Receive Date: 20190524
  Receipt Date: 20190524
  Transmission Date: 20190711
  Serious: Yes (Other)
  Sender: FDA-Public Use
  Company Number: BR-JNJFOC-20190530110

PATIENT
  Sex: Female

DRUGS (6)
  1. XARELTO [Suspect]
     Active Substance: RIVAROXABAN
     Indication: THROMBOSIS
     Route: 048
     Dates: start: 2018, end: 201903
  2. ENDOFOLIN [Concomitant]
     Active Substance: FOLIC ACID
     Route: 065
  3. SOLIRIS [Concomitant]
     Active Substance: ECULIZUMAB
     Indication: ATYPICAL HAEMOLYTIC URAEMIC SYNDROME
     Route: 042
     Dates: start: 20140214
  4. CITONEURIN [Concomitant]
     Active Substance: CYANOCOBALAMIN\PYRIDOXINE HYDROCHLORIDE\THIAMINE
     Route: 065
  5. SOLIRIS [Concomitant]
     Active Substance: ECULIZUMAB
     Indication: ATYPICAL HAEMOLYTIC URAEMIC SYNDROME
     Route: 042
     Dates: start: 20140115, end: 20140205
  6. MAGNESIUM [Concomitant]
     Active Substance: MAGNESIUM
     Route: 065

REACTIONS (3)
  - Blood iron decreased [Not Recovered/Not Resolved]
  - Menorrhagia [Unknown]
  - Fatigue [Not Recovered/Not Resolved]
